FAERS Safety Report 13652385 (Version 1)
Quarter: 2017Q2

REPORT INFORMATION
  Report Type: Spontaneous
  Country: US (occurrence: US)
  Receive Date: 20170614
  Receipt Date: 20170614
  Transmission Date: 20170830
  Serious: No
  Sender: FDA-Public Use
  Company Number: US-ROCHE-1328152

PATIENT
  Sex: Male

DRUGS (4)
  1. WARFARIN [Concomitant]
     Active Substance: WARFARIN
  2. XELODA [Suspect]
     Active Substance: CAPECITABINE
     Indication: COLON CANCER
     Dosage: IN THE MORNING; 14 DAYS ON THEN 7 DAYS OFF
     Route: 048
     Dates: start: 20131011
  3. XELODA [Suspect]
     Active Substance: CAPECITABINE
     Dosage: IN THE EVENING; 14 DAYS ON THEN 7 DAYS OFF
     Route: 048
     Dates: start: 20131011
  4. ASPIRIN. [Concomitant]
     Active Substance: ASPIRIN

REACTIONS (1)
  - Frequent bowel movements [Unknown]
